FAERS Safety Report 9455272 (Version 1)
Quarter: 2013Q3

REPORT INFORMATION
  Report Type: Spontaneous
  Country: TH (occurrence: TH)
  Receive Date: 20130813
  Receipt Date: 20130813
  Transmission Date: 20140515
  Serious: Yes (Hospitalization, Other)
  Sender: FDA-Public Use
  Company Number: TH-RANBAXY-2013RR-71222

PATIENT
  Age: 50 Year
  Sex: Female

DRUGS (17)
  1. PREDNISOLONE [Suspect]
     Indication: PRODUCT USED FOR UNKNOWN INDICATION
     Dosage: 1 MG/KG/DAY
     Route: 048
  2. MYFORTIC [Suspect]
     Indication: PRODUCT USED FOR UNKNOWN INDICATION
     Dosage: 540 MG, BID
     Route: 048
  3. PROGRAFT [Suspect]
     Indication: PRODUCT USED FOR UNKNOWN INDICATION
     Dosage: 0.2 MG/KG/DAY
     Route: 048
  4. RITUXIMAB [Suspect]
     Indication: KIDNEY TRANSPLANT REJECTION
     Dosage: UNK, SINGLE
     Route: 065
  5. BASILIXIMAB [Suspect]
     Indication: IMMUNOSUPPRESSION
     Dosage: UNK
     Route: 065
  6. METHYLPREDNISOLONE [Suspect]
     Indication: IMMUNOSUPPRESSANT DRUG THERAPY
     Dosage: UNK
     Route: 065
  7. TACROLIMUS [Suspect]
     Indication: IMMUNOSUPPRESSANT DRUG THERAPY
     Dosage: UNK
     Route: 065
  8. MYCOPHENOLATE MOFETIL [Suspect]
     Indication: IMMUNOSUPPRESSANT DRUG THERAPY
     Dosage: UNK
     Route: 065
  9. PANTOPRAZOLE [Suspect]
     Indication: DUODENAL ULCER HAEMORRHAGE
     Dosage: 8 MG/H, 192MG/DAY
     Route: 042
  10. VORICONAZOLE [Suspect]
     Indication: DUODENAL ULCER HAEMORRHAGE
     Dosage: UNK
     Route: 042
  11. GANICYCLOVIR [Suspect]
     Indication: DUODENAL ULCER HAEMORRHAGE
     Dosage: 5 MG/KG, BID
     Route: 042
  12. CEFOPERAZONE/SULBACTAM [Concomitant]
     Indication: URINARY TRACT INFECTION
     Dosage: UNK
     Route: 065
  13. CEFOPERAZONE/SULBACTAM [Concomitant]
     Indication: ACINETOBACTER INFECTION
  14. COLISTIN [Concomitant]
     Indication: URINARY TRACT INFECTION
     Dosage: UNK
     Route: 065
  15. COLISTIN [Concomitant]
     Indication: ACINETOBACTER INFECTION
  16. MEROPENEM [Concomitant]
     Indication: URINARY TRACT INFECTION
     Dosage: UNK
     Route: 042
  17. MEROPENEM [Concomitant]
     Indication: ACINETOBACTER INFECTION

REACTIONS (2)
  - Duodenal ulcer haemorrhage [Recovered/Resolved]
  - Drug ineffective [Unknown]
